FAERS Safety Report 26176513 (Version 1)
Quarter: 2025Q4

REPORT INFORMATION
  Report Type: Spontaneous
  Country: CA (occurrence: CA)
  Receive Date: 20251218
  Receipt Date: 20251218
  Transmission Date: 20260117
  Serious: Yes (Other)
  Sender: NOVO NORDISK
  Company Number: None

PATIENT
  Age: 44 Year
  Sex: Female

DRUGS (1)
  1. OZEMPIC [Suspect]
     Active Substance: SEMAGLUTIDE
     Indication: Weight control
     Dosage: 1 EVERY 1 WEEKS

REACTIONS (3)
  - Depression [Recovering/Resolving]
  - Suicidal ideation [Recovering/Resolving]
  - Product use in unapproved indication [Unknown]
